FAERS Safety Report 21513899 (Version 1)
Quarter: 2022Q4

REPORT INFORMATION
  Report Type: Spontaneous
  Country: JP (occurrence: JP)
  Receive Date: 20221027
  Receipt Date: 20221027
  Transmission Date: 20230112
  Serious: Yes (Death, Hospitalization, Other)
  Sender: FDA-Public Use
  Company Number: JP-PFM-2022-07683

PATIENT

DRUGS (5)
  1. PROPRANOLOL [Suspect]
     Active Substance: PROPRANOLOL HYDROCHLORIDE
     Indication: Mitochondrial enzyme deficiency
     Dosage: 0.5 MG/KG/DAY
     Route: 065
  2. PROPRANOLOL [Suspect]
     Active Substance: PROPRANOLOL HYDROCHLORIDE
     Indication: Off label use
     Dosage: 1 MG/KG/DAY
     Route: 065
  3. PROPRANOLOL [Suspect]
     Active Substance: PROPRANOLOL HYDROCHLORIDE
     Dosage: 3 MG/KG/DAY
     Route: 065
  4. CIFENLINE [Suspect]
     Active Substance: CIFENLINE
     Indication: Mitochondrial enzyme deficiency
     Dosage: 2.5 MG/KG/DAY,AT 3 MONTHS OF AGE AND INCREASED BY 1.2 MG/KG/DAY EACH WEEK
     Route: 048
  5. CIFENLINE [Suspect]
     Active Substance: CIFENLINE
     Dosage: 7.5 MG/KG/DAY
     Route: 048

REACTIONS (14)
  - Respiratory arrest [Fatal]
  - Renal tubular disorder [Recovering/Resolving]
  - Vomiting [Unknown]
  - Mitral valve incompetence [Unknown]
  - Pericardial effusion [Recovering/Resolving]
  - Left ventricle outflow tract obstruction [Recovering/Resolving]
  - Respiratory failure [Unknown]
  - Left ventricular hypertrophy [Unknown]
  - Condition aggravated [Unknown]
  - Product administered to patient of inappropriate age [Unknown]
  - Product use issue [Unknown]
  - Drug titration error [Unknown]
  - Off label use [Unknown]
  - Product use in unapproved indication [Unknown]
